FAERS Safety Report 8342653-1 (Version None)
Quarter: 2012Q2

REPORT INFORMATION
  Report Type: 
  Country: None (occurrence: None)
  Receive Date: 20120508
  Receipt Date: 20120502
  Transmission Date: 20120825
  Serious: No
  Sender: FDA-Public Use
  Company Number: US-BIOGENIDEC-2011BI011829

PATIENT
  Sex: Male

DRUGS (1)
  1. AVONEX [Suspect]
     Indication: MULTIPLE SCLEROSIS
     Route: 030
     Dates: start: 19980701

REACTIONS (4)
  - COGNITIVE DISORDER [None]
  - DYSGRAPHIA [None]
  - MUSCULOSKELETAL DISORDER [None]
  - MUSCULOSKELETAL STIFFNESS [None]
